FAERS Safety Report 24422587 (Version 2)
Quarter: 2024Q4

REPORT INFORMATION
  Report Type: Spontaneous
  Country: US (occurrence: US)
  Receive Date: 20241010
  Receipt Date: 20241021
  Transmission Date: 20250114
  Serious: Yes (Hospitalization)
  Sender: UROGEN PHARMA
  Company Number: US-UROGEN PHARMA LTD.-2024-UGN-000149

PATIENT

DRUGS (3)
  1. JELMYTO [Suspect]
     Active Substance: MITOMYCIN
     Indication: Product used for unknown indication
     Dosage: UNK, ONCE A WEEK (INSTILLATION)
     Route: 065
     Dates: start: 20240911, end: 20240911
  2. JELMYTO [Suspect]
     Active Substance: MITOMYCIN
     Dosage: UNK, ONCE A WEEK,(INSTILLATION)
     Route: 065
     Dates: start: 20240917, end: 20240917
  3. JELMYTO [Suspect]
     Active Substance: MITOMYCIN
     Dosage: UNK, ONCE A WEEK,(INSTILLATION)
     Route: 065
     Dates: start: 20240924, end: 20240924

REACTIONS (1)
  - Adverse event [Unknown]

NARRATIVE: CASE EVENT DATE: 20241002
